FAERS Safety Report 5592877-1 (Version None)
Quarter: 2008Q1

REPORT INFORMATION
  Report Type: 
  Country: None (occurrence: None)
  Receive Date: 20080115
  Receipt Date: 20080115
  Transmission Date: 20080703
  Serious: Yes (Life-Threatening)
  Sender: FDA-Public Use
  Company Number: None

PATIENT
  Sex: Male
  Weight: 127.9144 kg

DRUGS (3)
  1. PROGRAF [Suspect]
  2. CELLCEPT [Suspect]
  3. MYCOPHENOLATE MOFETIL [Concomitant]

REACTIONS (2)
  - COMPLICATIONS OF TRANSPLANTED LIVER [None]
  - TRANSPLANT FAILURE [None]
